FAERS Safety Report 9176489 (Version 1)
Quarter: 2013Q1

REPORT INFORMATION
  Report Type: Spontaneous
  Country: US (occurrence: None)
  Receive Date: 20130320
  Receipt Date: 20130320
  Transmission Date: 20140127
  Serious: No
  Sender: FDA-Public Use
  Company Number: None

PATIENT
  Age: 65 Year
  Sex: Female

DRUGS (6)
  1. ZELBORAF [Suspect]
     Indication: MALIGNANT MELANOMA
     Dosage: 4 TABS BID PO
  2. PROVENTIL [Concomitant]
  3. ASPIRIN [Concomitant]
  4. FLUOXETINE [Concomitant]
  5. CLARITIN [Concomitant]
  6. VITAMIN D [Concomitant]

REACTIONS (6)
  - Neuropathy peripheral [None]
  - Burning sensation [None]
  - Paraesthesia [None]
  - Pruritus [None]
  - Pain in extremity [None]
  - Insomnia [None]
